FAERS Safety Report 15622423 (Version 1)
Quarter: 2018Q4

REPORT INFORMATION
  Report Type: Spontaneous
  Country: JP (occurrence: JP)
  Receive Date: 20181115
  Receipt Date: 20181115
  Transmission Date: 20190205
  Serious: Yes (Other)
  Sender: FDA-Public Use
  Company Number: JP-BAXTER-2018BAX027846

PATIENT
  Age: 59 Year
  Sex: Female
  Weight: 31 kg

DRUGS (1)
  1. SUPRANE [Suspect]
     Active Substance: DESFLURANE
     Indication: MAINTENANCE OF ANAESTHESIA
     Route: 055
     Dates: start: 20150713, end: 20150713

REACTIONS (4)
  - Post procedural complication [Recovered/Resolved]
  - Procedural vomiting [Recovered/Resolved]
  - Adrenal insufficiency [Recovered/Resolved]
  - Procedural nausea [Recovered/Resolved]

NARRATIVE: CASE EVENT DATE: 20150713
